FAERS Safety Report 7132449-0 (Version None)
Quarter: 2010Q4

REPORT INFORMATION
  Report Type: 
  Country: None (occurrence: None)
  Receive Date: 20101202
  Receipt Date: 20101124
  Transmission Date: 20110411
  Serious: Yes (Hospitalization)
  Sender: FDA-Public Use
  Company Number: FR-ROCHE-727383

PATIENT
  Sex: Female
  Weight: 82 kg

DRUGS (5)
  1. CAPECITABINE [Suspect]
     Indication: RECTAL CANCER
     Dosage: DOSE PRIOR TO SAE:10 SEP 2010. DOSE ON DAY 1-33 W/O  WEEKENDS PLUS OPTIONAL BOOST. TREATMENT DELAYED
     Route: 048
     Dates: start: 20100823
  2. OXALIPLATIN [Suspect]
     Indication: RECTAL CANCER
     Dosage: LAST DOSE PRIOR TO SAE: 06 SEP 2010.  DOSE TO BE GIVEN ON DAY 1, 8, 15, 22 AND 29. TREATMENT DELAYED
     Route: 042
     Dates: start: 20100823
  3. TARDYFERON [Concomitant]
     Route: 048
  4. TRANSILANE [Concomitant]
     Indication: CONSTIPATION
     Route: 048
  5. CARBOLEVURE [Concomitant]
     Route: 048

REACTIONS (1)
  - DIHYDROPYRIMIDINE DEHYDROGENASE DEFICIENCY [None]
